FAERS Safety Report 9579934 (Version 1)
Quarter: 2013Q4

REPORT INFORMATION
  Report Type: Spontaneous
  Country: US (occurrence: US)
  Receive Date: 20131002
  Receipt Date: 20131002
  Transmission Date: 20140711
  Serious: Yes (Other)
  Sender: FDA-Public Use
  Company Number: US-009507513-1310USA000756

PATIENT
  Age: 62 Year
  Sex: Female

DRUGS (2)
  1. FOSAMAX [Suspect]
     Indication: OSTEOPOROSIS
     Route: 048
  2. IBANDRONATE SODIUM [Suspect]
     Indication: OSTEOPOROSIS

REACTIONS (2)
  - Osteonecrosis of jaw [Recovering/Resolving]
  - Surgery [Unknown]
